FAERS Safety Report 20943196 (Version 3)
Quarter: 2023Q2

REPORT INFORMATION
  Report Type: Report from Study
  Country: IT (occurrence: IT)
  Receive Date: 20220610
  Receipt Date: 20230629
  Transmission Date: 20230722
  Serious: Yes (Other)
  Sender: FDA-Public Use
  Company Number: IT-UCBSA-2022027925

PATIENT
  Age: 51 Year
  Sex: Female

DRUGS (6)
  1. VIMPAT [Suspect]
     Active Substance: LACOSAMIDE
     Indication: Seizure
     Dosage: 50MG UNK
  2. VIMPAT [Suspect]
     Active Substance: LACOSAMIDE
     Dosage: 50 MG MORNINGA AND AFTERNOON, 100 MG AT NIGHT, 3X/DAY (TID)
     Dates: start: 202205
  3. VIMPAT [Suspect]
     Active Substance: LACOSAMIDE
     Dosage: 50 MILLIGRAM, 2X/DAY (BID)2X 50MG TABLETS DAILY
  4. VIMPAT [Suspect]
     Active Substance: LACOSAMIDE
     Dosage: 100 MILLIGRAM, ONCE DAILY (QD)
  5. RIVOTRIL [Suspect]
     Active Substance: CLONAZEPAM
     Indication: Product used for unknown indication
     Dosage: UNK
  6. RIVOTRIL [Suspect]
     Active Substance: CLONAZEPAM
     Dosage: REDUCED DOSE

REACTIONS (8)
  - Seizure [Recovering/Resolving]
  - Fall [Recovering/Resolving]
  - Lip injury [Recovering/Resolving]
  - Tooth fracture [Recovering/Resolving]
  - Balance disorder [Recovering/Resolving]
  - Off label use [Unknown]
  - Drug ineffective [Unknown]
  - Pain [Unknown]

NARRATIVE: CASE EVENT DATE: 20211001
